FAERS Safety Report 26133955 (Version 2)
Quarter: 2025Q4

REPORT INFORMATION
  Report Type: Spontaneous
  Country: US (occurrence: US)
  Receive Date: 20251209
  Receipt Date: 20251215
  Transmission Date: 20260118
  Serious: No
  Sender: BRISTOL-MYERS SQUIBB COMPANY
  Company Number: US-BRISTOL-MYERS SQUIBB COMPANY-2025-164714

PATIENT
  Age: 45 Year
  Sex: Female

DRUGS (1)
  1. ORENCIA [Suspect]
     Active Substance: ABATACEPT
     Indication: Product used for unknown indication
     Dosage: CODE UNIT: 125 MG/ML 1 SYRINGE SUBCUTANEOUSLY ONCE A WEEK
     Route: 058

REACTIONS (2)
  - Product contamination physical [Unknown]
  - No adverse event [Unknown]

NARRATIVE: CASE EVENT DATE: 20251201
